FAERS Safety Report 8088925 (Version 2)
Quarter: 2012Q4

REPORT INFORMATION
  Report Type: 
  Country: IT (occurrence: IT)
  Receive Date: 20110812
  Receipt Date: 20120907
  Transmission Date: 20130627
  Serious: Yes (Death, Other)
  Sender: FDA-Public Use
  Company Number: IT-CELGENEUS-083-21880-11061374

PATIENT

DRUGS (2)
  1. REVLIMID [Suspect]
     Indication: PLASMA CELL LEUKAEMIA
     Dosage: 25 Milligram
     Route: 048
  2. DEXAMETHASONE [Suspect]
     Indication: PLASMA CELL LEUKAEMIA
     Route: 048

REACTIONS (17)
  - Death [Fatal]
  - Multi-organ failure [Unknown]
  - Renal failure acute [Unknown]
  - Stevens-Johnson syndrome [Unknown]
  - Pneumonia [Unknown]
  - Haematotoxicity [Unknown]
  - Deep vein thrombosis [Unknown]
  - Neutropenia [Unknown]
  - Embolism [Unknown]
  - Disease progression [Unknown]
  - Condition aggravated [Unknown]
  - Infection [Unknown]
  - Renal disorder [Unknown]
  - Metabolic disorder [Unknown]
  - Gastrointestinal disorder [Unknown]
  - Skin disorder [Unknown]
  - Fatigue [Unknown]
